FAERS Safety Report 9129936 (Version 4)
Quarter: 2014Q3

REPORT INFORMATION
  Report Type: Spontaneous
  Country: US (occurrence: US)
  Receive Date: 20130228
  Receipt Date: 20140822
  Transmission Date: 20150326
  Serious: Yes (Hospitalization, Other)
  Sender: FDA-Public Use
  Company Number: US-009507513-2011SP034942

PATIENT
  Sex: Female
  Weight: 56.7 kg

DRUGS (3)
  1. NUVARING [Suspect]
     Active Substance: ETHINYL ESTRADIOL\ETONOGESTREL
     Indication: CONTRACEPTION
     Dosage: UNK
     Route: 067
     Dates: start: 200208, end: 200401
  2. NUVARING [Suspect]
     Active Substance: ETHINYL ESTRADIOL\ETONOGESTREL
     Dosage: UNK
     Route: 067
     Dates: start: 200402
  3. NUVARING [Suspect]
     Active Substance: ETHINYL ESTRADIOL\ETONOGESTREL
     Dosage: UNK
     Route: 067
     Dates: start: 200610, end: 200707

REACTIONS (14)
  - Varicose vein [Unknown]
  - Laser therapy [Unknown]
  - Migraine [Unknown]
  - Phlebectomy [Unknown]
  - Infectious mononucleosis [Unknown]
  - Venous stent insertion [Unknown]
  - Peripheral venous disease [Unknown]
  - Pain [Unknown]
  - Arthritis reactive [Unknown]
  - Varicose vein [Unknown]
  - Ophthalmoplegic migraine [Unknown]
  - Nausea [Unknown]
  - Deep vein thrombosis [Recovering/Resolving]
  - Sclerotherapy [Unknown]

NARRATIVE: CASE EVENT DATE: 200302
